FAERS Safety Report 5290604-9 (Version None)
Quarter: 2007Q2

REPORT INFORMATION
  Report Type: 
  Country: None (occurrence: None)
  Receive Date: 20070405
  Receipt Date: 20070405
  Transmission Date: 20071010
  Serious: Yes (Other)
  Sender: FDA-Public Use
  Company Number: None

PATIENT
  Age: 66 Year
  Sex: Female
  Weight: 63.5036 kg

DRUGS (2)
  1. CLOBETASOL PROPIONATE [Suspect]
     Indication: AUTOIMMUNE DISORDER
     Dosage: APPLY TO SKIN 2/DAY DERMAL
     Route: 061
     Dates: start: 20061018, end: 20070110
  2. CLOBETASOL PROPIONATE [Suspect]
     Indication: PSORIASIS
     Dosage: APPLY TO SKIN 2/DAY DERMAL
     Route: 061
     Dates: start: 20061018, end: 20070110

REACTIONS (5)
  - INSOMNIA [None]
  - RASH GENERALISED [None]
  - SKIN BURNING SENSATION [None]
  - SKIN DISCOLOURATION [None]
  - SKIN DISORDER [None]
